FAERS Safety Report 18118999 (Version 1)
Quarter: 2020Q3

REPORT INFORMATION
  Report Type: Spontaneous
  Country: US (occurrence: US)
  Receive Date: 20200806
  Receipt Date: 20200806
  Transmission Date: 20201103
  Serious: Yes (Other)
  Sender: FDA-Public Use
  Company Number: None

PATIENT
  Age: 82 Year
  Sex: Male
  Weight: 56.7 kg

DRUGS (1)
  1. GADOBENATE DIMEGLUMINE [Suspect]
     Active Substance: GADOBENATE DIMEGLUMINE
     Indication: PRODUCT USED FOR UNKNOWN INDICATION
     Dates: start: 20200519, end: 20200519

REACTIONS (4)
  - Myalgia [None]
  - Pain [None]
  - Musculoskeletal stiffness [None]
  - Contrast media reaction [None]

NARRATIVE: CASE EVENT DATE: 20200519
